FAERS Safety Report 12630518 (Version 1)
Quarter: 2016Q3

REPORT INFORMATION
  Report Type: Spontaneous
  Country: US (occurrence: US)
  Receive Date: 20160808
  Receipt Date: 20160808
  Transmission Date: 20161109
  Serious: No
  Sender: FDA-Public Use
  Company Number: US-PFIZER INC-2016348729

PATIENT
  Age: 80 Year
  Sex: Male

DRUGS (2)
  1. METHOTREXATE SODIUM. [Suspect]
     Active Substance: METHOTREXATE SODIUM
     Dosage: UNK, WEEKLY (TAKES 6 PILLS)
  2. PREDNISONE. [Suspect]
     Active Substance: PREDNISONE
     Dosage: UNK, 2X/DAY

REACTIONS (1)
  - Pain [Unknown]
